FAERS Safety Report 7407007-0 (Version None)
Quarter: 2011Q2

REPORT INFORMATION
  Report Type: 
  Country: None (occurrence: None)
  Receive Date: 20110411
  Receipt Date: 20110330
  Transmission Date: 20111010
  Serious: Yes (Hospitalization, Other)
  Sender: FDA-Public Use
  Company Number: JP-PFIZER INC-2010100266

PATIENT
  Age: 83 Year
  Sex: Male
  Weight: 54 kg

DRUGS (16)
  1. CELECOX [Suspect]
     Indication: BACK PAIN
     Dosage: 200 MG DAILY
     Route: 048
     Dates: start: 20100611, end: 20100622
  2. GASMOTIN [Concomitant]
     Indication: GASTRITIS
     Dosage: UNK
     Dates: start: 20100602
  3. OXYBUPROCAINE HYDROCHLORIDE [Concomitant]
     Indication: LACRIMATION INCREASED
     Dosage: UNK
  4. DEPAS [Concomitant]
     Indication: ABDOMINAL DISCOMFORT
     Dosage: UNK
     Dates: start: 20060509
  5. MUCODYNE [Concomitant]
     Indication: GASTRITIS
     Dosage: UNK
     Dates: start: 20100602
  6. SELBEX [Concomitant]
     Indication: GASTRITIS
     Dosage: UNK
     Dates: start: 20100602
  7. PARIET [Concomitant]
     Indication: REFLUX OESOPHAGITIS
     Dosage: UNK
     Dates: start: 20100602
  8. TIZANIDINE HYDROCHLORIDE [Concomitant]
     Indication: MYALGIA
     Dosage: UNK
     Dates: start: 20100602
  9. SEVEN EP [Concomitant]
     Indication: GASTRITIS
     Dosage: UNK
     Dates: start: 20100602
  10. PANALDINE [Concomitant]
     Indication: ANGINA PECTORIS
     Dosage: UNK
     Dates: start: 20100609
  11. SIGMART [Concomitant]
     Indication: ANGINA PECTORIS
     Dosage: UNK
     Dates: start: 20100602
  12. MUCOSTA [Concomitant]
     Indication: GASTRITIS
     Dosage: UNK
     Dates: start: 20100602
  13. ASPIRIN [Concomitant]
     Indication: ANGINA PECTORIS
     Dosage: UNK
     Dates: start: 20100609
  14. ISALON [Concomitant]
     Indication: GASTRITIS
     Dosage: UNK
     Dates: start: 20100602
  15. MEDICON [Concomitant]
     Indication: COUGH
     Dosage: UNK
     Dates: start: 20100601, end: 20100611
  16. SODIUM ALGINATE [Concomitant]
     Indication: GASTRITIS
     Dosage: UNK
     Route: 048
     Dates: start: 20100602

REACTIONS (4)
  - NEURECTOMY [None]
  - BLOOD ALKALINE PHOSPHATASE INCREASED [None]
  - LIVER DISORDER [None]
  - GAMMA-GLUTAMYLTRANSFERASE INCREASED [None]
